FAERS Safety Report 5193586-3 (Version None)
Quarter: 2006Q4

REPORT INFORMATION
  Report Type: 
  Country: None (occurrence: None)
  Receive Date: 20061228
  Receipt Date: 20060920
  Transmission Date: 20070319
  Serious: No
  Sender: FDA-Public Use
  Company Number: US-GLAXOSMITHKLINE-A0620857A

PATIENT
  Age: 54 Year
  Sex: Male

DRUGS (5)
  1. FLONASE [Suspect]
     Indication: INNER EAR DISORDER
     Dosage: 50MCG AS REQUIRED
     Route: 045
     Dates: start: 20060701
  2. AMITRIPTYLINE HCL [Suspect]
     Dosage: 25MG UNKNOWN
  3. ASTELIN [Suspect]
     Dosage: 1SPR TWICE PER DAY
  4. COLCHICINE [Suspect]
     Indication: GOUT
  5. HERBAL SUPPLEMENT [Suspect]
     Indication: NUTRITIONAL SUPPORT
     Dosage: 7TAB PER DAY
     Route: 048
     Dates: end: 20060901

REACTIONS (1)
  - DRUG SCREEN FALSE POSITIVE [None]
